FAERS Safety Report 20743962 (Version 1)
Quarter: 2022Q2

REPORT INFORMATION
  Report Type: Spontaneous
  Country: GR (occurrence: None)
  Receive Date: 20220425
  Receipt Date: 20220425
  Transmission Date: 20220721
  Serious: Yes (Other)
  Sender: FDA-Public Use
  Company Number: GR-ROCHE-3076414

PATIENT
  Age: 21 Year
  Sex: Female

DRUGS (1)
  1. OCREVUS [Suspect]
     Active Substance: OCRELIZUMAB
     Indication: Multiple sclerosis
     Dosage: 20/SEP/2021
     Route: 065
     Dates: start: 202103

REACTIONS (3)
  - Anaphylactic shock [Unknown]
  - Infection [Unknown]
  - Sinusitis [Unknown]
